APPROVED DRUG PRODUCT: ZEGERID
Active Ingredient: OMEPRAZOLE; SODIUM BICARBONATE
Strength: 40MG;1.1GM **Federal Register determination that product was not discontinued or withdrawn for safety or effectiveness reasons**
Dosage Form/Route: CAPSULE;ORAL
Application: N021849 | Product #002
Applicant: SALIX PHARMACEUTICALS INC
Approved: Feb 27, 2006 | RLD: Yes | RS: No | Type: DISCN